FAERS Safety Report 5554965-5 (Version None)
Quarter: 2007Q4

REPORT INFORMATION
  Report Type: 
  Country: None (occurrence: None)
  Receive Date: 20071213
  Receipt Date: 20071209
  Transmission Date: 20080405
  Serious: Yes (Other)
  Sender: FDA-Public Use
  Company Number: US-JNJFOC-20071202928

PATIENT
  Sex: Female

DRUGS (3)
  1. TYLENOL COLD MULTI-SYMPTOM NIGHTTIME COOL BURST [Suspect]
     Indication: COUGH
  2. TYLENOL COLD MULTI-SYMPTOM NIGHTTIME COOL BURST [Suspect]
     Indication: INFLUENZA
  3. TYLENOL COLD MULTI-SYMPTOM NIGHTTIME COOL BURST [Suspect]
     Indication: NASOPHARYNGITIS
     Dosage: UNKNOWN

REACTIONS (2)
  - HEPATIC FAILURE [None]
  - HEPATOCELLULAR DAMAGE [None]
